FAERS Safety Report 14474803 (Version 1)
Quarter: 2018Q1

REPORT INFORMATION
  Report Type: Spontaneous
  Country: JP (occurrence: JP)
  Receive Date: 20180201
  Receipt Date: 20180201
  Transmission Date: 20180509
  Serious: Yes (Hospitalization)
  Sender: FDA-Public Use
  Company Number: JP-LANNETT COMPANY, INC.-JP-2018LAN000042

PATIENT
  Age: 89 Year
  Sex: Male

DRUGS (2)
  1. NEOMYCIN SULFATE. [Suspect]
     Active Substance: NEOMYCIN SULFATE
     Indication: CATHETER SITE INFECTION
     Dosage: UNK
     Route: 065
  2. BACITRACIN. [Suspect]
     Active Substance: BACITRACIN
     Indication: CATHETER SITE INFECTION
     Dosage: UNK
     Route: 065

REACTIONS (2)
  - Device related infection [Unknown]
  - Mycobacterium abscessus infection [Unknown]
